FAERS Safety Report 11703233 (Version 2)
Quarter: 2016Q1

REPORT INFORMATION
  Report Type: Spontaneous
  Country: US (occurrence: US)
  Receive Date: 20151105
  Receipt Date: 20160204
  Transmission Date: 20160525
  Serious: Yes (Hospitalization)
  Sender: FDA-Public Use
  Company Number: US-AMGEN-USASP2015081906

PATIENT
  Age: 82 Year
  Sex: Female
  Weight: 48.73 kg

DRUGS (38)
  1. PROCRIT [Suspect]
     Active Substance: ERYTHROPOIETIN
     Dosage: 5000 UNIT, WEEKLY
     Route: 065
     Dates: start: 20151105, end: 20151112
  2. CALCITROL                          /00508501/ [Concomitant]
     Active Substance: CALCIUM CARBONATE\ERGOCALCIFEROL\RETINOL
     Indication: PARATHYROID TUMOUR
     Dosage: UNK
  3. LEVOTHYROXINE. [Concomitant]
     Active Substance: LEVOTHYROXINE
     Dosage: UNK
  4. HYDRALAZINE [Concomitant]
     Active Substance: HYDRALAZINE HYDROCHLORIDE
     Indication: HYPOTENSION
     Dosage: UNK
  5. MAGNESIUM CHLORIDE. [Concomitant]
     Active Substance: MAGNESIUM CHLORIDE
     Dosage: UNK
  6. SODIUM BICARBONATE. [Concomitant]
     Active Substance: SODIUM BICARBONATE
     Dosage: UNK
  7. PROCRIT [Suspect]
     Active Substance: ERYTHROPOIETIN
     Dosage: 5000 UNIT, WEEKLY
     Route: 065
     Dates: start: 20151021, end: 20151026
  8. LASIX [Concomitant]
     Active Substance: FUROSEMIDE
     Indication: SWELLING
     Dosage: UNK
     Route: 048
  9. CATAPRES                           /00171101/ [Concomitant]
     Active Substance: CLONIDINE
     Indication: BLOOD PRESSURE MEASUREMENT
     Dosage: 3 MG, QWK
     Route: 062
  10. IRON [Concomitant]
     Active Substance: IRON
     Indication: HAEMOGLOBIN DECREASED
     Dosage: UNK
  11. PROCRIT [Suspect]
     Active Substance: ERYTHROPOIETIN
     Dosage: 4000 UNIT, WEEKLY
     Route: 065
     Dates: start: 20151007, end: 20151014
  12. ARANESP [Suspect]
     Active Substance: DARBEPOETIN ALFA
     Indication: HYPERPARATHYROIDISM SECONDARY
     Dosage: UNK
     Route: 065
  13. BYSTOLIC [Concomitant]
     Active Substance: NEBIVOLOL HYDROCHLORIDE
     Indication: BLOOD PRESSURE MEASUREMENT
     Dosage: UNK
  14. GABAPENTIN. [Concomitant]
     Active Substance: GABAPENTIN
     Indication: NEUROPATHY PERIPHERAL
     Dosage: UNK
     Route: 048
  15. SPIRONOLACTONE. [Concomitant]
     Active Substance: SPIRONOLACTONE
     Indication: OEDEMA
  16. SPIRONOLACTONE. [Concomitant]
     Active Substance: SPIRONOLACTONE
     Indication: BLOOD POTASSIUM DECREASED
  17. FLU [Concomitant]
     Active Substance: INFLUENZA VIRUS VACCINE
     Dosage: UNK
     Dates: start: 20150929
  18. FUROSEMIDE. [Concomitant]
     Active Substance: FUROSEMIDE
     Dosage: UNK
  19. PROCRIT [Suspect]
     Active Substance: ERYTHROPOIETIN
     Dosage: 8000 UNIT, WEEKLY
     Route: 065
     Dates: start: 201512
  20. LATANOPROST. [Concomitant]
     Active Substance: LATANOPROST
     Indication: GLAUCOMA
     Dosage: UNK
  21. MINOXIDIL. [Concomitant]
     Active Substance: MINOXIDIL
     Indication: HYPOTENSION
     Dosage: UNK
  22. ALLOPURINOL. [Concomitant]
     Active Substance: ALLOPURINOL
     Dosage: UNK
  23. PROCRIT [Suspect]
     Active Substance: ERYTHROPOIETIN
     Indication: ANAEMIA
     Dosage: 4000 UNIT, WEEKLY
     Route: 065
     Dates: start: 20150914, end: 201509
  24. THYROXINE [Concomitant]
     Active Substance: LEVOTHYROXINE
     Indication: HYPERTHYROIDISM
     Dosage: UNK
  25. SPIRONOLACTONE. [Concomitant]
     Active Substance: SPIRONOLACTONE
     Indication: BLOOD PRESSURE MEASUREMENT
     Dosage: UNK
     Route: 048
     Dates: end: 20150805
  26. CARVEDILOL. [Concomitant]
     Active Substance: CARVEDILOL
     Dosage: UNK
  27. PROCRIT [Suspect]
     Active Substance: ERYTHROPOIETIN
     Indication: HAEMOGLOBIN DECREASED
     Dosage: 4000 UNIT, EVERY TWO WEEKS
     Route: 042
     Dates: start: 20150721, end: 201507
  28. PROCRIT [Suspect]
     Active Substance: ERYTHROPOIETIN
     Indication: BLOOD CREATININE DECREASED
     Dosage: 20000 UNIT, EVERY TWO WEEKS
     Route: 042
     Dates: start: 20150804, end: 2015
  29. NICARDIPINE HCL [Concomitant]
     Active Substance: NICARDIPINE HYDROCHLORIDE
     Indication: HYPOTENSION
     Dosage: UNK, TID
  30. ASPIRIN                            /00002701/ [Concomitant]
     Active Substance: ASPIRIN
     Dosage: 81 MG, DAILY
     Route: 048
  31. METOLAZONE. [Concomitant]
     Active Substance: METOLAZONE
     Dosage: 10 MG, UNK
  32. RENVELA [Concomitant]
     Active Substance: SEVELAMER CARBONATE
     Dosage: UNK
  33. CLONIDINE. [Concomitant]
     Active Substance: CLONIDINE
     Dosage: UNK
  34. PROCRIT [Suspect]
     Active Substance: ERYTHROPOIETIN
     Dosage: 4000 UNIT, UNK
     Route: 065
     Dates: start: 20150922, end: 20150922
  35. PROCRIT [Suspect]
     Active Substance: ERYTHROPOIETIN
     Dosage: 6000 UNIT, WEEKLY
     Route: 065
     Dates: start: 20151119, end: 20151123
  36. VITAMIN D2 [Concomitant]
     Active Substance: ERGOCALCIFEROL
     Indication: SUPPLEMENTATION THERAPY
     Dosage: 50000 UNIT, QWK
     Route: 048
  37. FERROUS SULFATE [Concomitant]
     Active Substance: FERROUS SULFATE\FERROUS SULFATE, DRIED
     Dosage: UNK
  38. HYDRAL [Concomitant]
     Dosage: 50 MG, UNK

REACTIONS (24)
  - Haemoglobin decreased [Unknown]
  - Tremor [Recovered/Resolved]
  - Drug effect incomplete [Unknown]
  - Groin pain [Recovered/Resolved]
  - Speech disorder [Not Recovered/Not Resolved]
  - Back pain [Recovered/Resolved]
  - Blood glucose increased [Not Recovered/Not Resolved]
  - Unevaluable event [Unknown]
  - Glomerular filtration rate decreased [Not Recovered/Not Resolved]
  - Swelling face [Not Recovered/Not Resolved]
  - Intentional product use issue [Not Recovered/Not Resolved]
  - Nasal oedema [Unknown]
  - Weight decreased [Unknown]
  - Eye swelling [Not Recovered/Not Resolved]
  - Slow speech [Not Recovered/Not Resolved]
  - Pain in extremity [Recovered/Resolved]
  - Muscular weakness [Recovered/Resolved]
  - Blood pressure decreased [Not Recovered/Not Resolved]
  - Lethargy [Not Recovered/Not Resolved]
  - Mouth swelling [Unknown]
  - Lip swelling [Not Recovered/Not Resolved]
  - Feeling abnormal [Not Recovered/Not Resolved]
  - Body height decreased [Not Recovered/Not Resolved]
  - Anaemia [Unknown]

NARRATIVE: CASE EVENT DATE: 2015
